FAERS Safety Report 23371301 (Version 1)
Quarter: 2024Q1

REPORT INFORMATION
  Report Type: Spontaneous
  Country: US (occurrence: US)
  Receive Date: 20240105
  Receipt Date: 20240105
  Transmission Date: 20240409
  Serious: No
  Sender: FDA-Public Use
  Company Number: US-PFIZER INC-PV202300209920

PATIENT
  Age: 52 Year
  Sex: Female

DRUGS (1)
  1. CIBINQO [Suspect]
     Active Substance: ABROCITINIB
     Indication: Psoriasis
     Dosage: 100 MG

REACTIONS (4)
  - Neck pain [Unknown]
  - Vitreous floaters [Unknown]
  - Off label use [Unknown]
  - Drug effective for unapproved indication [Unknown]
